FAERS Safety Report 23724341 (Version 2)
Quarter: 2024Q2

REPORT INFORMATION
  Report Type: Report from Study
  Country: US (occurrence: US)
  Receive Date: 20240409
  Receipt Date: 20240520
  Transmission Date: 20240716
  Serious: No
  Sender: FDA-Public Use
  Company Number: US-BoehringerIngelheim-2023-BI-244500

PATIENT
  Age: 87 Year
  Sex: Female

DRUGS (1)
  1. OFEV [Suspect]
     Active Substance: NINTEDANIB
     Indication: Product used for unknown indication
     Route: 048

REACTIONS (4)
  - Blood blister [Recovered/Resolved]
  - Haemoptysis [Not Recovered/Not Resolved]
  - Illness [Unknown]
  - Diarrhoea [Unknown]
